FAERS Safety Report 21990602 (Version 1)
Quarter: 2023Q1

REPORT INFORMATION
  Report Type: Spontaneous
  Country: US (occurrence: None)
  Receive Date: 20230213
  Receipt Date: 20230213
  Transmission Date: 20230418
  Serious: Yes (Other)
  Sender: FDA-Public Use
  Company Number: None

PATIENT
  Age: 37 Year
  Sex: Female
  Weight: 116.9 kg

DRUGS (4)
  1. INFED [Suspect]
     Active Substance: IRON DEXTRAN
     Indication: Iron deficiency anaemia
     Dosage: OTHER FREQUENCY : ONCE;?
     Route: 042
  2. ferrous sulfate 325 mg PO daily [Concomitant]
  3. Xarelto 10 mg PO daily [Concomitant]
     Dates: start: 20220405
  4. Vyvanse 50 mg PO daily [Concomitant]

REACTIONS (4)
  - Throat tightness [None]
  - Flushing [None]
  - Hot flush [None]
  - Infusion related reaction [None]

NARRATIVE: CASE EVENT DATE: 20221028
